FAERS Safety Report 5268331-3 (Version None)
Quarter: 2007Q1

REPORT INFORMATION
  Report Type: 
  Country: None (occurrence: None)
  Receive Date: 20070319
  Receipt Date: 20070308
  Transmission Date: 20070707
  Serious: Yes (Hospitalization)
  Sender: FDA-Public Use
  Company Number: FR-AVENTIS-200711181EU

PATIENT

DRUGS (1)
  1. LASIX [Suspect]

REACTIONS (5)
  - EOSINOPHILIA [None]
  - GRANULOCYTOSIS [None]
  - PYREXIA [None]
  - RASH [None]
  - RASH PUSTULAR [None]
